FAERS Safety Report 8489857-5 (Version None)
Quarter: 2012Q3

REPORT INFORMATION
  Report Type: 
  Country: None (occurrence: None)
  Receive Date: 20120705
  Receipt Date: 20110614
  Transmission Date: 20120928
  Serious: No
  Sender: FDA-Public Use
  Company Number: US-BAUSCH-2011BL003924

PATIENT
  Age: 73 Year
  Sex: Male

DRUGS (7)
  1. FISH OIL [Concomitant]
  2. ZYLATAN COSOPT [Concomitant]
     Indication: GLAUCOMA
  3. BRIMONIDINE TARTRATE [Suspect]
     Indication: GLAUCOMA
     Route: 047
     Dates: start: 20090101, end: 20100101
  4. BRIMONIDINE TARTRATE [Suspect]
     Route: 047
     Dates: start: 20100101
  5. ASPIRIN [Concomitant]
  6. LIPITOR [Concomitant]
     Indication: BLOOD CHOLESTEROL INCREASED
  7. LEVOTHYROXINE SODIUM [Concomitant]
     Indication: THYROID DISORDER

REACTIONS (6)
  - RASH GENERALISED [None]
  - NEOPLASM SKIN [None]
  - EYE PAIN [None]
  - ERYTHEMA OF EYELID [None]
  - SINUS DISORDER [None]
  - COUGH [None]
